FAERS Safety Report 7922465-0 (Version None)
Quarter: 2011Q4

REPORT INFORMATION
  Report Type: 
  Country: None (occurrence: None)
  Receive Date: 20111117
  Receipt Date: 20110121
  Transmission Date: 20120403
  Serious: No
  Sender: FDA-Public Use
  Company Number: US-AMGEN-USASP2011003928

PATIENT
  Age: 67 Year
  Sex: Female

DRUGS (3)
  1. ENBREL [Suspect]
     Indication: PSORIATIC ARTHROPATHY
     Dosage: 50 MG, Q4WK
     Dates: start: 20040628
  2. METHOTREXATE [Concomitant]
     Dates: start: 20040101
  3. ENBREL [Suspect]
     Indication: PSORIASIS

REACTIONS (3)
  - SINUSITIS [None]
  - RASH PAPULAR [None]
  - BLOOD CHOLESTEROL INCREASED [None]
